FAERS Safety Report 20704263 (Version 1)
Quarter: 2022Q2

REPORT INFORMATION
  Report Type: Spontaneous
  Country: US (occurrence: US)
  Receive Date: 20220413
  Receipt Date: 20220413
  Transmission Date: 20220721
  Serious: No
  Sender: FDA-Public Use
  Company Number: US-BIOVITRUM-2022US05089

PATIENT
  Sex: Male
  Weight: 153 kg

DRUGS (3)
  1. DOPTELET [Suspect]
     Active Substance: AVATROMBOPAG MALEATE
     Indication: Immune thrombocytopenia
     Route: 048
  2. AMOXICILLIN 250 MG TAB CHEW [Concomitant]
  3. PENCILLIN VK 250 MG TABLET [Concomitant]

REACTIONS (1)
  - Drug ineffective [Unknown]
